FAERS Safety Report 4615356-4 (Version None)
Quarter: 2005Q1

REPORT INFORMATION
  Report Type: 
  Country: None (occurrence: None)
  Receive Date: 20050317
  Receipt Date: 20050311
  Transmission Date: 20050727
  Serious: Yes (Life-Threatening)
  Sender: FDA-Public Use
  Company Number: 2005AP01705

PATIENT
  Age: 79 Year
  Sex: Female

DRUGS (1)
  1. TENORMIN [Suspect]

REACTIONS (2)
  - ATRIOVENTRICULAR BLOCK [None]
  - SINUS ARREST [None]
